FAERS Safety Report 24430879 (Version 5)
Quarter: 2025Q2

REPORT INFORMATION
  Report Type: Spontaneous
  Country: US (occurrence: US)
  Receive Date: 20241014
  Receipt Date: 20250515
  Transmission Date: 20250717
  Serious: No
  Sender: SANOFI AVENTIS
  Company Number: US-SA-2024SA289758

PATIENT
  Age: 6 Year
  Sex: Female
  Weight: 33.1 kg

DRUGS (2)
  1. DUPIXENT [Suspect]
     Active Substance: DUPILUMAB
     Indication: Dermatitis atopic
     Dosage: 300 MG, Q4W
     Route: 058
  2. DUPIXENT [Suspect]
     Active Substance: DUPILUMAB
     Dosage: 200 MG, QOW
     Route: 058

REACTIONS (9)
  - Sleep apnoea syndrome [Unknown]
  - Skin weeping [Unknown]
  - Skin haemorrhage [Unknown]
  - Injection site urticaria [Unknown]
  - Injection site mass [Unknown]
  - Dermatitis atopic [Recovered/Resolved]
  - Injection site pain [Unknown]
  - Injection site swelling [Recovered/Resolved]
  - Off label use [Unknown]
